FAERS Safety Report 7348151-6 (Version None)
Quarter: 2011Q1

REPORT INFORMATION
  Report Type: 
  Country: None (occurrence: None)
  Receive Date: 20110311
  Receipt Date: 20110228
  Transmission Date: 20110831
  Serious: Yes (Hospitalization, Other)
  Sender: FDA-Public Use
  Company Number: US-TYCO HEALTHCARE/MALLINCKRODT-T201001932

PATIENT
  Sex: Male

DRUGS (9)
  1. OPTIMARK [Suspect]
     Indication: NUCLEAR MAGNETIC RESONANCE IMAGING
     Dosage: 20 ML, SINGLE
     Route: 042
     Dates: start: 20060208, end: 20060208
  2. LOPRESSOR [Concomitant]
     Dosage: 50 MG, UNK
  3. ZOCOR [Concomitant]
     Dosage: 40 MG, UNK
  4. MULTIHANCE                         /01386803/ [Suspect]
     Indication: NUCLEAR MAGNETIC RESONANCE IMAGING
     Dosage: 20 ML, SINGLE
     Route: 042
     Dates: start: 20051212, end: 20051212
  5. OMNISCAN [Suspect]
     Indication: NUCLEAR MAGNETIC RESONANCE IMAGING
     Dosage: 20 ML, SINGLE
     Dates: start: 20020528, end: 20020528
  6. PEPCID                             /01596501/ [Concomitant]
     Dosage: 20 MG, UNK
  7. CYCLOBENZAPRINE [Concomitant]
     Dosage: 10 MG, UNK
  8. ASPIRIN [Concomitant]
     Dosage: 81 MG, UNK
  9. IMDUR [Concomitant]
     Dosage: 30 MG, UNK

REACTIONS (16)
  - APPENDICITIS [None]
  - NEPHROGENIC SYSTEMIC FIBROSIS [None]
  - HYPERTENSIVE CRISIS [None]
  - OFF LABEL USE [None]
  - DYSPNOEA [None]
  - CELLULITIS [None]
  - CEREBRAL ARTERY STENOSIS [None]
  - CYST [None]
  - NEUROPATHIC ULCER [None]
  - FLUID OVERLOAD [None]
  - JOINT SWELLING [None]
  - ONYCHOMYCOSIS [None]
  - OESOPHAGITIS ULCERATIVE [None]
  - NORMOCHROMIC NORMOCYTIC ANAEMIA [None]
  - DISORIENTATION [None]
  - CHEST PAIN [None]
